FAERS Safety Report 11522260 (Version 1)
Quarter: 2015Q3

REPORT INFORMATION
  Report Type: Spontaneous
  Country: US (occurrence: US)
  Receive Date: 20150918
  Receipt Date: 20150918
  Transmission Date: 20151125
  Serious: No
  Sender: FDA-Public Use
  Company Number: US-ROCHE-698344

PATIENT
  Age: 60 Year
  Sex: Male
  Weight: 58 kg

DRUGS (15)
  1. VITAMIN D3 [Concomitant]
     Active Substance: CHOLECALCIFEROL
     Dosage: 1000 UNITS TAB
     Route: 048
  2. MELATONIN [Concomitant]
     Active Substance: MELATONIN
     Route: 048
  3. VIAGRA [Concomitant]
     Active Substance: SILDENAFIL CITRATE
     Dosage: 50 TO 100 MG AS NEEDED
     Route: 048
  4. ADVAIR DISKUS [Concomitant]
     Active Substance: FLUTICASONE PROPIONATE\SALMETEROL XINAFOATE
     Dosage: STRENGTH: 250-50 UG; DOSE: 2 PUFFS AS NEEDED
     Route: 055
  5. VITAMIN A [Concomitant]
     Active Substance: VITAMIN A
     Dosage: 8000 UNIT CAPSULE; 1 CAP ONCE DAILY AS NEEDED
     Route: 048
  6. PEGASYS [Suspect]
     Active Substance: PEGINTERFERON ALFA-2A
     Indication: HEPATITIS C
     Dosage: DOSE: 180 UG/0.5 ML; FORM: PRE-FILLED SYRINGE
     Route: 058
  7. RIBAVIRIN. [Suspect]
     Active Substance: RIBAVIRIN
     Indication: HEPATITIS C
     Dosage: IN DIVIDED DOSES
     Route: 048
  8. ALBUTEROL. [Concomitant]
     Active Substance: ALBUTEROL
     Dosage: 2 PUFFS EVERY 4-6 HOURS AS NEEDED
     Route: 055
  9. VITAMIN B12 [Concomitant]
     Active Substance: CYANOCOBALAMIN
     Route: 048
  10. NEURONTIN [Concomitant]
     Active Substance: GABAPENTIN
     Route: 048
  11. MOTRIN [Concomitant]
     Active Substance: IBUPROFEN
     Indication: PAIN
     Dosage: 600 MG TWICE DAILY WITH FOOD AS NEEDED
     Route: 048
  12. PRILOSEC [Concomitant]
     Active Substance: OMEPRAZOLE MAGNESIUM
     Route: 048
  13. PROZAC [Concomitant]
     Active Substance: FLUOXETINE HYDROCHLORIDE
     Route: 048
  14. GOLDEN SEAL ECHINACEA [Concomitant]
     Route: 048
  15. DESYREL [Concomitant]
     Active Substance: TRAZODONE HYDROCHLORIDE
     Dosage: 50 TO 100 MG AT BEDTIME AS NEEDED
     Route: 048

REACTIONS (17)
  - Confusional state [Not Recovered/Not Resolved]
  - Epistaxis [Not Recovered/Not Resolved]
  - Rhinorrhoea [Unknown]
  - Pain [Not Recovered/Not Resolved]
  - Wheezing [Unknown]
  - Localised infection [Unknown]
  - Cough [Not Recovered/Not Resolved]
  - Abdominal pain upper [Not Recovered/Not Resolved]
  - Fatigue [Not Recovered/Not Resolved]
  - Mood altered [Unknown]
  - Ear infection [Unknown]
  - Chest discomfort [Unknown]
  - Sinusitis [Recovered/Resolved]
  - Psychiatric symptom [Not Recovered/Not Resolved]
  - Skin exfoliation [Unknown]
  - Dry eye [Not Recovered/Not Resolved]
  - Chills [Not Recovered/Not Resolved]

NARRATIVE: CASE EVENT DATE: 20100212
